FAERS Safety Report 22278773 (Version 1)
Quarter: 2023Q2

REPORT INFORMATION
  Report Type: Spontaneous
  Country: US (occurrence: None)
  Receive Date: 20230502
  Receipt Date: 20230502
  Transmission Date: 20230721
  Serious: No
  Sender: FDA-Public Use
  Company Number: None

PATIENT
  Sex: Female
  Weight: 57.15 kg

DRUGS (18)
  1. IBRANCE [Suspect]
     Active Substance: PALBOCICLIB
     Indication: Breast cancer female
     Dosage: FREQUENCY : DAILY;?OTHER ROUTE : OR 21 DAYS ON, 7 D OFF;?
     Route: 050
     Dates: start: 20230210
  2. ASPIRIN [Concomitant]
     Active Substance: ASPIRIN
  3. BENADRYL [Concomitant]
     Active Substance: DIPHENHYDRAMINE HYDROCHLORIDE
  4. CETIRIZINE [Concomitant]
     Active Substance: CETIRIZINE HYDROCHLORIDE
  5. CITALOPRAM [Concomitant]
  6. FEMARA [Concomitant]
  7. FISH OIL [Suspect]
     Active Substance: FISH OIL
  8. LORAZEPAM [Concomitant]
  9. LETROZOLE [Concomitant]
     Active Substance: LETROZOLE
  10. LEVOTHYROXINE [Concomitant]
  11. METOCLOPRAMIDE [Concomitant]
  12. PANTOPRAZOLE [Concomitant]
  13. PROPRANOLOL [Concomitant]
     Active Substance: PROPRANOLOL HYDROCHLORIDE
  14. SOLIFENACIN [Concomitant]
  15. TEMAZEPAM [Concomitant]
     Active Substance: TEMAZEPAM
  16. Vitamin B Complex Combinations [Concomitant]
  17. VITAMIN D3 [Concomitant]
     Active Substance: CHOLECALCIFEROL
  18. XGEVA [Concomitant]
     Active Substance: DENOSUMAB

REACTIONS (1)
  - White blood cell count decreased [None]
